FAERS Safety Report 12390007 (Version 1)
Quarter: 2016Q2

REPORT INFORMATION
  Report Type: Spontaneous
  Country: US (occurrence: US)
  Receive Date: 20160520
  Receipt Date: 20160520
  Transmission Date: 20160815
  Serious: No
  Sender: FDA-Public Use
  Company Number: US-G+W LABS-GW2016US000013

PATIENT

DRUGS (1)
  1. CLOBETASOL PROPIONATE. [Suspect]
     Active Substance: CLOBETASOL PROPIONATE
     Indication: PRODUCT USED FOR UNKNOWN INDICATION
     Dosage: A FEW DROPS TWICE DAILY (FOR DAYS, NOS)
     Route: 061
     Dates: start: 20160405, end: 201604

REACTIONS (2)
  - Skin disorder [None]
  - Erythema [Recovered/Resolved]

NARRATIVE: CASE EVENT DATE: 201604
